FAERS Safety Report 8506785-7 (Version None)
Quarter: 2012Q3

REPORT INFORMATION
  Report Type: 
  Country: None (occurrence: None)
  Receive Date: 20120712
  Receipt Date: 20120709
  Transmission Date: 20120928
  Serious: No
  Sender: FDA-Public Use
  Company Number: US-PFIZER INC-2012164321

PATIENT
  Sex: Female
  Weight: 117.46 kg

DRUGS (2)
  1. REVATIO [Suspect]
     Indication: PULMONARY HYPERTENSION
     Dosage: 20 MG, 2X/DAY
     Route: 048
     Dates: start: 20080101
  2. VENTAVIS [Concomitant]
     Dosage: UNK, 6X/DAY

REACTIONS (2)
  - WEIGHT INCREASED [None]
  - ASTHENIA [None]
